FAERS Safety Report 24405305 (Version 1)
Quarter: 2024Q4

REPORT INFORMATION
  Report Type: Report from Study
  Country: US (occurrence: US)
  Receive Date: 20241007
  Receipt Date: 20241007
  Transmission Date: 20250115
  Serious: No
  Sender: ROCHE
  Company Number: US-ROCHE-3570485

PATIENT
  Age: 47 Year
  Sex: Female

DRUGS (13)
  1. GAZYVA [Suspect]
     Active Substance: OBINUTUZUMAB
     Indication: Nephrotic syndrome
     Dosage: 1000 MG IVBP IN 1000 ML NS AND START INFUSION AT 50 MG/HR AND INCREASE BY 50 MG/HR EVERY 30 MIN TO M
     Route: 042
  2. GAZYVA [Suspect]
     Active Substance: OBINUTUZUMAB
     Indication: Focal segmental glomerulosclerosis
  3. ACETAMINOPHEN [Concomitant]
     Active Substance: ACETAMINOPHEN
  4. DIPHENHYDRAMINE [Concomitant]
     Active Substance: DIPHENHYDRAMINE
  5. HYDROCORTISONE [Concomitant]
     Active Substance: HYDROCORTISONE
  6. EPINEPHRINE [Concomitant]
     Active Substance: EPINEPHRINE
  7. ALBUTEROL SULFATE [Concomitant]
     Active Substance: ALBUTEROL SULFATE
  8. LIPITOR [Concomitant]
     Active Substance: ATORVASTATIN CALCIUM
  9. ZYRTEC [Concomitant]
     Active Substance: CETIRIZINE HYDROCHLORIDE
  10. FLONASE [Concomitant]
     Active Substance: FLUTICASONE PROPIONATE
  11. LASIX [Concomitant]
     Active Substance: FUROSEMIDE
     Dosage: 40 MG TABLET
  12. LISINOPRIL [Concomitant]
     Active Substance: LISINOPRIL
     Dosage: 10 MG TABLET
  13. PROGRAF [Concomitant]
     Active Substance: TACROLIMUS

REACTIONS (2)
  - Off label use [Unknown]
  - No adverse event [Unknown]
